FAERS Safety Report 5130173-7 (Version None)
Quarter: 2006Q4

REPORT INFORMATION
  Report Type: 
  Country: None (occurrence: None)
  Receive Date: 20061013
  Receipt Date: 20060926
  Transmission Date: 20070319
  Serious: No
  Sender: FDA-Public Use
  Company Number: US200609002449

PATIENT
  Age: 30 Year
  Sex: Female

DRUGS (1)
  1. GLUCAGON [Suspect]
     Indication: BLOOD GLUCOSE DECREASED

REACTIONS (2)
  - NO ADVERSE DRUG EFFECT [None]
  - PHARMACEUTICAL PRODUCT COMPLAINT [None]
